FAERS Safety Report 7434046-6 (Version None)
Quarter: 2011Q2

REPORT INFORMATION
  Report Type: 
  Country: None (occurrence: None)
  Receive Date: 20110425
  Receipt Date: 20110411
  Transmission Date: 20111010
  Serious: Yes (Other)
  Sender: FDA-Public Use
  Company Number: PT-BAYER-2011-010514

PATIENT
  Age: 36 Year
  Sex: Female

DRUGS (4)
  1. MELOXICAM [Concomitant]
     Dosage: 15 MG, UNK
  2. REUMOXICAN [Concomitant]
     Dosage: 10 MG, UNK
  3. BROMELAIN [Concomitant]
  4. BETAFERON [Suspect]
     Indication: MULTIPLE SCLEROSIS
     Dosage: UNK
     Route: 058
     Dates: start: 20080326

REACTIONS (4)
  - INJECTION SITE INFLAMMATION [None]
  - INJECTION SITE NODULE [None]
  - INJECTION SITE ABSCESS [None]
  - GAIT DISTURBANCE [None]
